FAERS Safety Report 8922593 (Version 1)
Quarter: 2012Q4

REPORT INFORMATION
  Report Type: 
  Country: TW (occurrence: TW)
  Receive Date: 20121123
  Receipt Date: 20121123
  Transmission Date: 20130627
  Serious: Yes (Other)
  Sender: FDA-Public Use
  Company Number: TW-PFIZER INC-2012289941

PATIENT
  Age: 65 Year
  Sex: Female

DRUGS (6)
  1. CELEBREX [Suspect]
     Indication: RA
     Dosage: 200 mg, 1x/day
     Dates: start: 201210, end: 20121115
  2. CELEBREX [Suspect]
     Dosage: UNK mg, 1x/day
     Route: 048
     Dates: start: 2011, end: 201108
  3. MTX [Concomitant]
     Indication: RA
     Dosage: UNK
     Route: 048
     Dates: start: 2011
  4. ENTECAVIR [Concomitant]
     Indication: LIVER FUNCTION TEST ABNORMAL
     Dosage: 0.5 mg, 1x/day
     Route: 048
     Dates: start: 20120106
  5. EXFORGE [Concomitant]
     Indication: HYPERTENSION
     Dosage: UNK
     Dates: start: 20120106
  6. QUININE [Concomitant]
     Indication: RA
     Dosage: UNK

REACTIONS (2)
  - Hepatic cirrhosis [Unknown]
  - Liver function test abnormal [Recovered/Resolved]
